FAERS Safety Report 22296668 (Version 3)
Quarter: 2023Q2

REPORT INFORMATION
  Report Type: Spontaneous
  Country: JP (occurrence: JP)
  Receive Date: 20230508
  Receipt Date: 20230528
  Transmission Date: 20230721
  Serious: Yes (Death, Other)
  Sender: FDA-Public Use
  Company Number: JP-ABBVIE-4708948

PATIENT

DRUGS (6)
  1. VENCLEXTA [Suspect]
     Active Substance: VENETOCLAX
     Indication: Acute myeloid leukaemia
     Dosage: 50 MILLIGRAM
     Route: 048
     Dates: end: 20230305
  2. AZACITIDINE [Concomitant]
     Active Substance: AZACITIDINE
     Indication: Acute myeloid leukaemia
  3. ITRACONAZOLE [Concomitant]
     Active Substance: ITRACONAZOLE
     Indication: Antifungal prophylaxis
  4. RABEPRAZOLE SODIUM [Concomitant]
     Active Substance: RABEPRAZOLE SODIUM
     Indication: Gastric ulcer
  5. ALENDRONATE SODIUM [Concomitant]
     Active Substance: ALENDRONATE SODIUM
     Indication: Osteoporosis
  6. FEBUXOSTAT EG [Concomitant]
     Indication: Prophylaxis

REACTIONS (9)
  - Acute myeloid leukaemia [Fatal]
  - Loss of personal independence in daily activities [Unknown]
  - Pneumonia aspiration [Fatal]
  - Blastic plasmacytoid dendritic cell neoplasia [Fatal]
  - Febrile neutropenia [Unknown]
  - Pyrexia [Unknown]
  - Choking [Unknown]
  - Chest pain [Unknown]
  - Lung opacity [Unknown]

NARRATIVE: CASE EVENT DATE: 20230302
